FAERS Safety Report 22142770 (Version 3)
Quarter: 2023Q2

REPORT INFORMATION
  Report Type: Spontaneous
  Country: US (occurrence: None)
  Receive Date: 20230327
  Receipt Date: 20230501
  Transmission Date: 20230721
  Serious: Yes (Hospitalization, Disabling)
  Sender: FDA-Public Use
  Company Number: US-ROCHE-3317180

PATIENT
  Age: 75 Year
  Sex: Male

DRUGS (7)
  1. PEGASYS [Suspect]
     Active Substance: PEGINTERFERON ALFA-2A
     Indication: Neoplasm malignant
     Route: 058
     Dates: start: 202302, end: 2023
  2. PEGASYS [Suspect]
     Active Substance: PEGINTERFERON ALFA-2A
     Indication: Myelodysplastic syndrome with ringed sideroblasts
  3. HYDROXYUREA [Concomitant]
     Active Substance: HYDROXYUREA
  4. ALLOPURINOL [Concomitant]
     Active Substance: ALLOPURINOL
  5. FLOMAX [Concomitant]
     Active Substance: TAMSULOSIN HYDROCHLORIDE
  6. PROZAC [Concomitant]
     Active Substance: FLUOXETINE HYDROCHLORIDE
  7. FLUOXETINE [Concomitant]
     Active Substance: FLUOXETINE HYDROCHLORIDE

REACTIONS (9)
  - Pneumonia aspiration [Recovering/Resolving]
  - Pulmonary fibrosis [Unknown]
  - Hydronephrosis [Unknown]
  - Urinary retention [Unknown]
  - Nephrolithiasis [Unknown]
  - Pulmonary sepsis [Unknown]
  - Pneumonia [Unknown]
  - Weight decreased [Not Recovered/Not Resolved]
  - Off label use [Unknown]

NARRATIVE: CASE EVENT DATE: 20230214
